FAERS Safety Report 7951929-9 (Version None)
Quarter: 2011Q4

REPORT INFORMATION
  Report Type: 
  Country: None (occurrence: None)
  Receive Date: 20111130
  Receipt Date: 20111130
  Transmission Date: 20120403
  Serious: No
  Sender: FDA-Public Use
  Company Number: None

PATIENT
  Sex: Female
  Weight: 8.5 kg

DRUGS (2)
  1. LEVETIRACETAM [Suspect]
     Indication: EPILEPSY
     Dosage: 2ML BID PO
     Route: 048
     Dates: start: 20110804
  2. LEVETIRACETAM [Suspect]
     Indication: CONGENITAL CENTRAL NERVOUS SYSTEM ANOMALY
     Dosage: 2ML BID PO
     Route: 048
     Dates: start: 20110804

REACTIONS (2)
  - INSOMNIA [None]
  - CONVULSION [None]
